FAERS Safety Report 8310622-3 (Version None)
Quarter: 2012Q2

REPORT INFORMATION
  Report Type: 
  Country: None (occurrence: None)
  Receive Date: 20120425
  Receipt Date: 20120425
  Transmission Date: 20120825
  Serious: Yes (Other)
  Sender: FDA-Public Use
  Company Number: None

PATIENT
  Age: 23 Year
  Sex: Female
  Weight: 76.203 kg

DRUGS (4)
  1. LAMICTAL [Concomitant]
  2. CITALOPRAM HYDROBROMIDE [Suspect]
     Indication: DEPRESSION
     Dosage: 10 MG
     Route: 048
  3. CITALOPRAM HYDROBROMIDE [Suspect]
     Indication: DEPRESSION
     Dosage: 10 MG
     Route: 048
     Dates: start: 20120207, end: 20120423
  4. LAMICTAL [Concomitant]

REACTIONS (8)
  - ATAXIA [None]
  - FATIGUE [None]
  - PARAESTHESIA [None]
  - TREMOR [None]
  - GAIT DISTURBANCE [None]
  - BALANCE DISORDER [None]
  - HYPERREFLEXIA [None]
  - CLONUS [None]
